FAERS Safety Report 4977611-8 (Version None)
Quarter: 2006Q2

REPORT INFORMATION
  Report Type: 
  Country: None (occurrence: None)
  Receive Date: 20060414
  Receipt Date: 20060406
  Transmission Date: 20061013
  Serious: Yes (Other)
  Sender: FDA-Public Use
  Company Number: 200611495BCC

PATIENT
  Sex: Female
  Weight: 58.0604 kg

DRUGS (2)
  1. ALEVE (CAPLET) [Suspect]
     Indication: ARTHRALGIA
     Dosage: 220-440 MG, IRR, ORAL
     Route: 048
  2. HYGROTON [Concomitant]

REACTIONS (1)
  - GLAUCOMA [None]
